FAERS Safety Report 9694050 (Version 1)
Quarter: 2013Q4

REPORT INFORMATION
  Report Type: Other
  Country: GB (occurrence: GB)
  Receive Date: 20131118
  Receipt Date: 20131118
  Transmission Date: 20140711
  Serious: Yes (Other)
  Sender: FDA-Public Use
  Company Number: GB-BRISTOL-MYERS SQUIBB COMPANY-19814417

PATIENT
  Sex: 0

DRUGS (1)
  1. METFORMIN HCL [Suspect]
     Route: 064

REACTIONS (4)
  - Hypertrophic cardiomyopathy [Recovered/Resolved]
  - Apgar score low [Unknown]
  - Metabolic acidosis [Unknown]
  - Foetal exposure during pregnancy [Recovered/Resolved]
